FAERS Safety Report 13433517 (Version 2)
Quarter: 2017Q3

REPORT INFORMATION
  Report Type: Report from Study
  Country: None (occurrence: DE)
  Receive Date: 20170412
  Receipt Date: 20170728
  Transmission Date: 20171127
  Serious: Yes (Hospitalization)
  Sender: FDA-Public Use
  Company Number: DE-ABBVIE-17K-062-1940101-00

PATIENT
  Age: 64 Year
  Sex: Female

DRUGS (1)
  1. HUMIRA [Suspect]
     Active Substance: ADALIMUMAB
     Indication: RHEUMATIC DISORDER
     Route: 058
     Dates: start: 201608

REACTIONS (5)
  - Intervertebral disc protrusion [Recovered/Resolved]
  - Scoliosis [Recovered/Resolved]
  - Pneumonia [Recovered/Resolved]
  - Spinal osteoarthritis [Recovered/Resolved]
  - Osteochondrosis [Recovered/Resolved]

NARRATIVE: CASE EVENT DATE: 20161207
